FAERS Safety Report 7126364-6 (Version None)
Quarter: 2010Q4

REPORT INFORMATION
  Report Type: 
  Country: None (occurrence: None)
  Receive Date: 20101129
  Receipt Date: 20101117
  Transmission Date: 20110411
  Serious: Yes (Hospitalization, Other)
  Sender: FDA-Public Use
  Company Number: US-ELI_LILLY_AND_COMPANY-US201011005281

PATIENT
  Sex: Female

DRUGS (1)
  1. HUMALOG MIX 75/25 [Suspect]
     Indication: DIABETES MELLITUS
     Dosage: UNK, AS NEEDED

REACTIONS (12)
  - BLOOD GLUCOSE INCREASED [None]
  - BREAST CANCER [None]
  - CARDIAC FAILURE CONGESTIVE [None]
  - CARDIAC PACEMAKER INSERTION [None]
  - COUGH [None]
  - FALL [None]
  - HAEMOPTYSIS [None]
  - IMPLANTABLE DEFIBRILLATOR INSERTION [None]
  - KNEE ARTHROPLASTY [None]
  - MALAISE [None]
  - MENISCUS LESION [None]
  - NASOPHARYNGITIS [None]
